FAERS Safety Report 9274802 (Version 1)
Quarter: 2013Q2

REPORT INFORMATION
  Report Type: Spontaneous
  Country: US (occurrence: None)
  Receive Date: 20130501
  Receipt Date: 20130501
  Transmission Date: 20140414
  Serious: Yes (Other)
  Sender: FDA-Public Use
  Company Number: None

PATIENT
  Age: 51 Year
  Sex: Male

DRUGS (1)
  1. LISINOPRIL 20 MG [Suspect]
     Route: 048
     Dates: start: 20130312, end: 20130430

REACTIONS (3)
  - Blood pressure increased [None]
  - Product quality issue [None]
  - Product substitution issue [None]
